FAERS Safety Report 14907976 (Version 1)
Quarter: 2018Q2

REPORT INFORMATION
  Report Type: Spontaneous
  Country: US (occurrence: US)
  Receive Date: 20180429
  Receipt Date: 20180429
  Transmission Date: 20180711
  Serious: No
  Sender: FDA-Public Use
  Company Number: None

PATIENT
  Age: 42 Year
  Sex: Female
  Weight: 87.75 kg

DRUGS (2)
  1. IBUPROFEN. [Concomitant]
     Active Substance: IBUPROFEN
  2. ORAJEL MAXIMUM STRENGTH [Suspect]
     Active Substance: BENZOCAINE\MENTHOL
     Indication: TOOTHACHE
     Dosage: ?          OTHER ROUTE:RUBBED ON GUMS OF MOUTH?

REACTIONS (5)
  - Neuralgia [None]
  - Mouth swelling [None]
  - Swollen tongue [None]
  - Blister [None]
  - Pain [None]

NARRATIVE: CASE EVENT DATE: 20180424
